FAERS Safety Report 8480515-X (Version None)
Quarter: 2012Q3

REPORT INFORMATION
  Report Type: 
  Country: None (occurrence: None)
  Receive Date: 20120702
  Receipt Date: 20120628
  Transmission Date: 20120928
  Serious: No
  Sender: FDA-Public Use
  Company Number: US-BIOGENIDEC-2012BI021636

PATIENT
  Sex: Male

DRUGS (2)
  1. TYSABRI [Suspect]
     Indication: MULTIPLE SCLEROSIS
     Route: 042
     Dates: start: 20100910, end: 20101115
  2. TYSABRI [Suspect]
     Route: 042
     Dates: start: 20110909, end: 20120323

REACTIONS (4)
  - SUBDURAL HAEMATOMA [None]
  - UPPER RESPIRATORY TRACT INFECTION [None]
  - MEMORY IMPAIRMENT [None]
  - COGNITIVE DISORDER [None]
